FAERS Safety Report 15366837 (Version 1)
Quarter: 2018Q3

REPORT INFORMATION
  Report Type: Spontaneous
  Country: ES (occurrence: ES)
  Receive Date: 20180910
  Receipt Date: 20180910
  Transmission Date: 20181010
  Serious: Yes (Other)
  Sender: FDA-Public Use
  Company Number: ES-PFIZER INC-2018359678

PATIENT
  Age: 62 Year
  Sex: Male

DRUGS (11)
  1. AMLODIPINO ALTER [Concomitant]
     Active Substance: AMLODIPINE BESYLATE
     Dosage: UNK
  2. FOSTERNEXT HALER [Concomitant]
  3. TOUJEO [Concomitant]
     Active Substance: INSULIN GLARGINE
  4. ADIRO [Concomitant]
     Active Substance: ASPIRIN
  5. IRBESARTAN/HYDROCHLOROTHIAZIDE [Concomitant]
     Active Substance: HYDROCHLOROTHIAZIDE\IRBESARTAN
     Dosage: UNK
  6. VILDAGLIPTIN [Concomitant]
     Active Substance: VILDAGLIPTIN
  7. NOVOMIX [Concomitant]
     Active Substance: INSULIN ASPART
  8. FLECAINIDE [Concomitant]
     Active Substance: FLECAINIDE
  9. DIGOXINA KERN PHARMA [Concomitant]
     Dosage: UNK
  10. GEMFIBROZIL. [Suspect]
     Active Substance: GEMFIBROZIL
     Indication: HYPERTRIGLYCERIDAEMIA
     Dosage: 900 MG, 1X/DAY
     Route: 048
     Dates: start: 20180705, end: 20180712
  11. SPIRIVA [Concomitant]
     Active Substance: TIOTROPIUM BROMIDE MONOHYDRATE

REACTIONS (4)
  - Tremor [Recovered/Resolved]
  - Myalgia [Recovered/Resolved]
  - Vision blurred [Recovered/Resolved]
  - Amaurosis fugax [Recovered/Resolved]

NARRATIVE: CASE EVENT DATE: 20180706
